FAERS Safety Report 19654062 (Version 1)
Quarter: 2021Q3

REPORT INFORMATION
  Report Type: Report from Study
  Country: US (occurrence: US)
  Receive Date: 20210804
  Receipt Date: 20210804
  Transmission Date: 20211014
  Serious: No
  Sender: FDA-Public Use
  Company Number: NVSC2021US174084

PATIENT
  Sex: Female

DRUGS (1)
  1. COSENTYX [Suspect]
     Active Substance: SECUKINUMAB
     Indication: ANKYLOSING SPONDYLITIS
     Dosage: 300 MG, QMO
     Route: 042
     Dates: start: 20201102

REACTIONS (5)
  - Pain [Unknown]
  - Burning sensation [Unknown]
  - Stress [Unknown]
  - Psoriasis [Unknown]
  - Fatigue [Unknown]
